FAERS Safety Report 21549315 (Version 1)
Quarter: 2022Q4

REPORT INFORMATION
  Report Type: Spontaneous
  Country: US (occurrence: None)
  Receive Date: 20221102
  Receipt Date: 20221102
  Transmission Date: 20230113
  Serious: Yes (Hospitalization)
  Sender: FDA-Public Use
  Company Number: None

PATIENT
  Age: 28 Year
  Sex: Male
  Weight: 102 kg

DRUGS (1)
  1. SKYRIZI [Suspect]
     Active Substance: RISANKIZUMAB-RZAA
     Indication: Psoriasis
     Dates: start: 20220929, end: 20220929

REACTIONS (5)
  - Lethargy [None]
  - Pain [None]
  - Decreased appetite [None]
  - Jaundice [None]
  - Blood bilirubin increased [None]

NARRATIVE: CASE EVENT DATE: 20221030
